FAERS Safety Report 5531370-9 (Version None)
Quarter: 2007Q4

REPORT INFORMATION
  Report Type: 
  Country: None (occurrence: None)
  Receive Date: 20071128
  Receipt Date: 20071113
  Transmission Date: 20080405
  Serious: Yes (Hospitalization)
  Sender: FDA-Public Use
  Company Number: 2007S1012055

PATIENT
  Age: 36 Year
  Sex: Male

DRUGS (6)
  1. CLOZAPINE [Suspect]
     Indication: MENTAL DISORDER
  2. FLUCONAZOLE [Suspect]
     Dosage: 600 MG;DAILY;INTRAVENOUS
     Route: 042
  3. LITHIUM CARBONATE [Concomitant]
  4. CITALOPRAM HYDROBROMIDE [Concomitant]
  5. CLOMIPRAMINE HCL [Concomitant]
  6. LORAZEPAM [Concomitant]

REACTIONS (8)
  - ELECTROLYTE IMBALANCE [None]
  - FEBRILE NEUTROPENIA [None]
  - INFUSION SITE REACTION [None]
  - LEUKOPENIA [None]
  - NEPHROPATHY TOXIC [None]
  - PRURITUS [None]
  - RASH MACULO-PAPULAR [None]
  - SKIN EXFOLIATION [None]
